FAERS Safety Report 18089972 (Version 1)
Quarter: 2020Q3

REPORT INFORMATION
  Report Type: Spontaneous
  Country: ES (occurrence: ES)
  Receive Date: 20200730
  Receipt Date: 20200730
  Transmission Date: 20201103
  Serious: Yes (Other)
  Sender: FDA-Public Use
  Company Number: ES-TEVA-2020-ES-1806350

PATIENT
  Age: 37 Year
  Sex: Female
  Weight: 90 kg

DRUGS (1)
  1. LORATADINA [Suspect]
     Active Substance: LORATADINE
     Dates: start: 20200708

REACTIONS (1)
  - Rash [Unknown]

NARRATIVE: CASE EVENT DATE: 20200712
